FAERS Safety Report 8429205-X (Version None)
Quarter: 2012Q2

REPORT INFORMATION
  Report Type: 
  Country: None (occurrence: None)
  Receive Date: 20120612
  Receipt Date: 20120605
  Transmission Date: 20120825
  Serious: Yes (Other)
  Sender: FDA-Public Use
  Company Number: PHHY2012MX049526

PATIENT
  Sex: Female

DRUGS (3)
  1. INSULIN [Concomitant]
     Indication: DIABETES MELLITUS
     Dosage: 20 IU, PER DAY
  2. DIOVAN [Suspect]
     Indication: HYPERTENSION
     Dosage: 2 DF, DAILY (320 DAILY)
     Dates: start: 20060301
  3. PLENDIL [Concomitant]
     Indication: HYPERTENSION
     Dosage: 2 DF, PER DAY

REACTIONS (3)
  - EMBOLISM [None]
  - CEREBROVASCULAR ACCIDENT [None]
  - BLOOD PRESSURE INCREASED [None]
